FAERS Safety Report 5443357-5 (Version None)
Quarter: 2007Q3

REPORT INFORMATION
  Report Type: 
  Country: None (occurrence: None)
  Receive Date: 20070905
  Receipt Date: 20070829
  Transmission Date: 20080115
  Serious: Yes (Hospitalization)
  Sender: FDA-Public Use
  Company Number: A0677392A

PATIENT
  Sex: Female

DRUGS (7)
  1. FLOVENT [Suspect]
     Indication: ASTHMA
     Dosage: 1PUFF TWICE PER DAY
     Route: 055
     Dates: start: 19891201, end: 20070701
  2. ALBUTEROL [Concomitant]
  3. PROMETHAZINE [Concomitant]
  4. METFORMIN HCL [Concomitant]
  5. ATENOLOL / CHLORTHAL [Concomitant]
  6. PREMARIN [Concomitant]
  7. UNSPECIFIED MEDICATION [Concomitant]

REACTIONS (5)
  - CHOKING [None]
  - DIZZINESS [None]
  - HEADACHE [None]
  - HEART RATE INCREASED [None]
  - NAUSEA [None]
